FAERS Safety Report 12238439 (Version 5)
Quarter: 2020Q4

REPORT INFORMATION
  Report Type: Spontaneous
  Country: US (occurrence: US)
  Receive Date: 20160405
  Receipt Date: 20201203
  Transmission Date: 20210113
  Serious: No
  Sender: FDA-Public Use
  Company Number: US-PFIZER INC-2016186182

PATIENT
  Age: 47 Year
  Sex: Female

DRUGS (3)
  1. LYRICA [Suspect]
     Active Substance: PREGABALIN
     Indication: FIBROMYALGIA
     Dosage: 150 MG, 2X/DAY
     Dates: end: 201603
  2. LYRICA [Suspect]
     Active Substance: PREGABALIN
     Dosage: 450 MG, DAILY (TAKE 1 TABLET IN AM AND 2 TABLETS AT BEDTIME)
     Route: 048
  3. CYMBALTA [Concomitant]
     Active Substance: DULOXETINE HYDROCHLORIDE
     Dosage: UNK

REACTIONS (2)
  - Malaise [Not Recovered/Not Resolved]
  - Illness [Not Recovered/Not Resolved]
